FAERS Safety Report 7321267-6 (Version None)
Quarter: 2011Q1

REPORT INFORMATION
  Report Type: 
  Country: None (occurrence: None)
  Receive Date: 20110228
  Receipt Date: 20110223
  Transmission Date: 20110831
  Serious: Yes (Hospitalization)
  Sender: FDA-Public Use
  Company Number: DE-CEPHALON-2011000922

PATIENT
  Age: 65 Year
  Sex: Male
  Weight: 71 kg

DRUGS (5)
  1. RITUXIMAB [Suspect]
     Route: 042
     Dates: start: 20101108
  2. OMEPRAZOLE [Concomitant]
  3. BENDAMUSTINE HCL [Suspect]
     Route: 042
     Dates: start: 20101109
  4. ACICLOVIR [Concomitant]
  5. BISOPROLOL FUMARATE [Concomitant]

REACTIONS (1)
  - PNEUMOCYSTIS JIROVECI INFECTION [None]
